FAERS Safety Report 8680931 (Version 3)
Quarter: 2012Q4

REPORT INFORMATION
  Report Type: 
  Country: US (occurrence: US)
  Receive Date: 20120724
  Receipt Date: 20120920
  Transmission Date: 20130627
  Serious: No
  Sender: FDA-Public Use
  Company Number: US-PFIZER INC-2012173824

PATIENT
  Age: 79 Year
  Sex: Female
  Weight: 66.67 kg

DRUGS (4)
  1. SEPTRA [Suspect]
     Indication: CYSTITIS
     Dosage: UNK
     Dates: start: 20120711, end: 201207
  2. HYDROCHLOROTHIAZIDE [Suspect]
     Indication: HYPERTENSION
     Dosage: 25 mg, daily
  3. LISINOPRIL [Suspect]
     Indication: HYPERTENSION
     Dosage: 20 mg, daily
     Dates: start: 201207
  4. PRAMIPEXOLE [Concomitant]
     Indication: RESTLESS LEGS SYNDROME
     Dosage: 1 mg, daily

REACTIONS (6)
  - Swollen tongue [Not Recovered/Not Resolved]
  - Speech disorder [Not Recovered/Not Resolved]
  - Feeling cold [Not Recovered/Not Resolved]
  - Tremor [Not Recovered/Not Resolved]
  - Hypertension [Recovered/Resolved]
  - Blood potassium decreased [Unknown]
